FAERS Safety Report 9679467 (Version 1)
Quarter: 2013Q4

REPORT INFORMATION
  Report Type: Spontaneous
  Country: US (occurrence: US)
  Receive Date: 20131109
  Receipt Date: 20131109
  Transmission Date: 20140711
  Serious: No
  Sender: FDA-Public Use
  Company Number: US-SANOFI-AVENTIS-2013SA050876

PATIENT
  Age: 49 Year
  Sex: Female

DRUGS (2)
  1. ALLEGRA-D [Suspect]
     Indication: HYPERSENSITIVITY
     Dosage: DOSE - 180MG / 240MG
     Route: 048
  2. ALLEGRA-D [Suspect]
     Indication: HYPERSENSITIVITY
     Route: 048
     Dates: start: 20130515, end: 20130515

REACTIONS (2)
  - Dizziness [Not Recovered/Not Resolved]
  - Extra dose administered [Unknown]
